FAERS Safety Report 13045061 (Version 1)
Quarter: 2016Q4

REPORT INFORMATION
  Report Type: Spontaneous
  Country: CA (occurrence: CA)
  Receive Date: 20161220
  Receipt Date: 20161220
  Transmission Date: 20170207
  Serious: Yes (Other)
  Sender: FDA-Public Use
  Company Number: CA-AMGEN-CANSP2016177941

PATIENT
  Age: 62 Year
  Sex: Female
  Weight: 59 kg

DRUGS (18)
  1. PANTOPRAZOLE SODIUM. [Concomitant]
     Active Substance: PANTOPRAZOLE SODIUM
  2. ARISTOCORT [Concomitant]
     Active Substance: TRIAMCINOLONE DIACETATE
  3. ATIVAN [Concomitant]
     Active Substance: LORAZEPAM
  4. BROMAZEPAM [Concomitant]
     Active Substance: BROMAZEPAM
  5. IBUPROFEN. [Concomitant]
     Active Substance: IBUPROFEN
  6. NAPROXEN. [Concomitant]
     Active Substance: NAPROXEN
  7. METHOTREXATE. [Concomitant]
     Active Substance: METHOTREXATE
  8. TRAMCET [Concomitant]
     Active Substance: ACETAMINOPHEN\TRAMADOL
  9. LYRICA [Concomitant]
     Active Substance: PREGABALIN
  10. ENBREL [Suspect]
     Active Substance: ETANERCEPT
     Indication: PRODUCT USED FOR UNKNOWN INDICATION
     Dosage: UNK
     Route: 065
  11. CYCLOBENZAPRINE [Concomitant]
     Active Substance: CYCLOBENZAPRINE
  12. DESOXIMETASONE. [Concomitant]
     Active Substance: DESOXIMETASONE
  13. OMEPRAZOLE. [Concomitant]
     Active Substance: OMEPRAZOLE
  14. ATASOL 8 [Concomitant]
  15. DOVONEX [Concomitant]
     Active Substance: CALCIPOTRIENE
  16. REACTINE [Concomitant]
     Active Substance: CETIRIZINE HYDROCHLORIDE
  17. SYNTHROID [Concomitant]
     Active Substance: LEVOTHYROXINE SODIUM
  18. ACTEMRA [Suspect]
     Active Substance: TOCILIZUMAB
     Indication: RHEUMATOID ARTHRITIS
     Dosage: 440 MG, QMO (1 EVERY 4 WEEKS)
     Route: 042

REACTIONS (10)
  - Injection site mass [Recovered/Resolved]
  - Weight increased [Not Recovered/Not Resolved]
  - Arthritis [Not Recovered/Not Resolved]
  - Malaise [Not Recovered/Not Resolved]
  - Neurodermatitis [Not Recovered/Not Resolved]
  - Pain [Recovered/Resolved]
  - Rash [Not Recovered/Not Resolved]
  - Gait disturbance [Not Recovered/Not Resolved]
  - Hyperaesthesia [Not Recovered/Not Resolved]
  - Swelling [Not Recovered/Not Resolved]
